FAERS Safety Report 14210015 (Version 1)
Quarter: 2017Q4

REPORT INFORMATION
  Report Type: Spontaneous
  Country: US (occurrence: US)
  Receive Date: 20171121
  Receipt Date: 20171121
  Transmission Date: 20180321
  Serious: Yes (Other)
  Sender: FDA-Public Use
  Company Number: None

PATIENT
  Age: 57 Year
  Weight: 132.75 kg

DRUGS (9)
  1. LISINOPRIL. [Concomitant]
     Active Substance: LISINOPRIL
  2. FUROSEMIDE. [Concomitant]
     Active Substance: FUROSEMIDE
  3. TRINTELLIX [Suspect]
     Active Substance: VORTIOXETINE HYDROBROMIDE
     Indication: DEPRESSION
     Dosage: ?          QUANTITY:1 TABLET(S);?
     Route: 048
     Dates: start: 20170822, end: 20170906
  4. AMLODIPINE BESYLATE. [Concomitant]
     Active Substance: AMLODIPINE BESYLATE
  5. LEVOTHYROXINE. [Concomitant]
     Active Substance: LEVOTHYROXINE
  6. IBUPROFEN. [Concomitant]
     Active Substance: IBUPROFEN
  7. ALLERGY SHOTS [Concomitant]
     Active Substance: UNSPECIFIED INGREDIENT
  8. OCCUVITE [Concomitant]
  9. MULTI VITAMIN [Concomitant]
     Active Substance: VITAMINS

REACTIONS (1)
  - Urticaria [None]

NARRATIVE: CASE EVENT DATE: 20170822
